FAERS Safety Report 19502773 (Version 1)
Quarter: 2021Q3

REPORT INFORMATION
  Report Type: Report from Study
  Country: US (occurrence: US)
  Receive Date: 20210707
  Receipt Date: 20210707
  Transmission Date: 20211014
  Serious: Yes (Hospitalization)
  Sender: FDA-Public Use
  Company Number: US-ALLERGAN-2124606US

PATIENT
  Sex: Female

DRUGS (1)
  1. LINACLOTIDE 145MCG CAP (TBD) [Suspect]
     Active Substance: LINACLOTIDE
     Indication: GASTRIC DISORDER
     Dosage: 145 ?G
     Route: 048

REACTIONS (5)
  - Off label use [Unknown]
  - Infection [Unknown]
  - Therapy cessation [Unknown]
  - Abdominal distension [Unknown]
  - Diarrhoea [Unknown]
